FAERS Safety Report 7353489-2 (Version None)
Quarter: 2011Q1

REPORT INFORMATION
  Report Type: 
  Country: None (occurrence: None)
  Receive Date: 20110315
  Receipt Date: 20110307
  Transmission Date: 20110831
  Serious: Yes (Other)
  Sender: FDA-Public Use
  Company Number: ES-PURDUE-GBR-2010-0007209

PATIENT
  Age: 69 Year
  Sex: Male

DRUGS (8)
  1. PLAVIX [Concomitant]
     Indication: CARDIOVASCULAR EVENT PROPHYLAXIS
     Dosage: 75 MG, DAILY
     Dates: start: 20090101
  2. LYRICA [Concomitant]
     Indication: CANCER PAIN
     Dosage: 300 MG, BID
     Dates: start: 20090101
  3. OXYCONTIN 10 MG COMPRIMIDOS DE LIBERACION PROLONGADA [Suspect]
     Indication: CANCER PAIN
     Dosage: 30 MG, BID
     Route: 048
     Dates: start: 20100715, end: 20100728
  4. CARDIL                             /00489702/ [Concomitant]
     Indication: DYSLIPIDAEMIA
     Dosage: 20 MG, DAILY
     Dates: start: 20090101
  5. EZETROL [Concomitant]
     Indication: DYSLIPIDAEMIA
     Dosage: 10 MG, DAILY
     Dates: start: 20090101
  6. ADIRO [Concomitant]
     Indication: CARDIOVASCULAR EVENT PROPHYLAXIS
     Dosage: 100 MG, DAILY
     Dates: start: 20090101
  7. OXYCONTIN 10 MG COMPRIMIDOS DE LIBERACION PROLONGADA [Suspect]
     Dosage: 10 MG, BID
     Route: 048
     Dates: start: 20100301, end: 20100714
  8. INSULIN [Concomitant]
     Indication: DIABETES MELLITUS
     Dosage: UNK
     Dates: start: 20090101

REACTIONS (5)
  - HYPONATRAEMIA [None]
  - HALLUCINATIONS, MIXED [None]
  - PETIT MAL EPILEPSY [None]
  - LOWER RESPIRATORY TRACT INFECTION [None]
  - CONFUSIONAL STATE [None]
